FAERS Safety Report 18463660 (Version 1)
Quarter: 2020Q4

REPORT INFORMATION
  Report Type: Spontaneous
  Country: US (occurrence: US)
  Receive Date: 20201104
  Receipt Date: 20201104
  Transmission Date: 20210114
  Serious: No
  Sender: FDA-Public Use
  Company Number: NVSC2020US288660

PATIENT
  Age: 74 Year
  Sex: Female
  Weight: 55.57 kg

DRUGS (8)
  1. DUAVEE [Suspect]
     Active Substance: BAZEDOXIFENE ACETATE\ESTROGENS, CONJUGATED
     Indication: PRODUCT USED FOR UNKNOWN INDICATION
     Dosage: QD (0.45 MG CONJUGATED ESTROGEN/20 MG BAZEDOXIFENE)
     Route: 048
  2. METOPROLOL. [Concomitant]
     Active Substance: METOPROLOL
     Indication: HYPERTENSION
     Dosage: 75 MG, QD (25 MG/ 50 MG)
     Route: 065
     Dates: start: 20200511
  3. VASCEPA [Concomitant]
     Active Substance: ICOSAPENT ETHYL
     Indication: BLOOD CHOLESTEROL
     Dosage: 1 G, QD
     Route: 048
     Dates: start: 20200515
  4. VALSARTAN. [Suspect]
     Active Substance: VALSARTAN
     Indication: PRODUCT USED FOR UNKNOWN INDICATION
     Dosage: UNK
     Route: 065
  5. DIOVAN [Concomitant]
     Active Substance: VALSARTAN
     Indication: HYPERTENSION
     Dosage: 80 MG, QD
     Route: 048
  6. ATORVASTATIN [Concomitant]
     Active Substance: ATORVASTATIN
     Indication: BLOOD CHOLESTEROL
     Dosage: 10 MG, QD (AT EVENING)
     Route: 048
     Dates: start: 200804
  7. ARMOUR THYROID [Concomitant]
     Active Substance: THYROID, PORCINE
     Indication: HYPOTHYROIDISM
     Dosage: 160 MG, QD
     Route: 048
     Dates: start: 2008
  8. PROGESTERONE. [Concomitant]
     Active Substance: PROGESTERONE
     Indication: OSTEOPOROSIS
     Dosage: 100 MG, QD
     Route: 048
     Dates: start: 20201007

REACTIONS (2)
  - Drug ineffective [Unknown]
  - Endometrial hyperplasia [Unknown]

NARRATIVE: CASE EVENT DATE: 20200930
